FAERS Safety Report 23241933 (Version 2)
Quarter: 2024Q3

REPORT INFORMATION
  Report Type: Spontaneous
  Country: TR (occurrence: None)
  Receive Date: 20231129
  Receipt Date: 20240801
  Transmission Date: 20241017
  Serious: Yes (Congenital Anomaly)
  Sender: ASTRAZENECA
  Company Number: 2023A266303

PATIENT
  Sex: Female
  Weight: 3.2 kg

DRUGS (5)
  1. EXENATIDE [Suspect]
     Active Substance: EXENATIDE
     Indication: Type 2 diabetes mellitus
     Dosage: 5 MCG
     Route: 064
  2. SAXAGLIPTIN [Suspect]
     Active Substance: SAXAGLIPTIN
     Indication: Type 2 diabetes mellitus
     Dosage: 5 MG/DAY
     Route: 064
  3. METFORMIN [Suspect]
     Active Substance: METFORMIN HYDROCHLORIDE
     Indication: Type 2 diabetes mellitus
     Dosage: 2X 1000 MG/DAY
     Route: 064
  4. GLICLAZIDE [Suspect]
     Active Substance: GLICLAZIDE
     Indication: Type 2 diabetes mellitus
     Route: 064
  5. INSULIN HUMAN [Suspect]
     Active Substance: INSULIN HUMAN
     Route: 064

REACTIONS (2)
  - Foetal exposure during pregnancy [Unknown]
  - Atrial septal defect [Recovered/Resolved]
